FAERS Safety Report 19330626 (Version 1)
Quarter: 2021Q2

REPORT INFORMATION
  Report Type: Spontaneous
  Country: CN (occurrence: CN)
  Receive Date: 20210528
  Receipt Date: 20210528
  Transmission Date: 20210717
  Serious: Yes (Other)
  Sender: FDA-Public Use
  Company Number: CN-JUBILANT PHARMA LTD-2021CN000467

PATIENT
  Age: 65 Year
  Sex: Female

DRUGS (2)
  1. SODIUM IODIDE I?131. [Suspect]
     Active Substance: SODIUM IODIDE I-131
     Indication: IODINE UPTAKE
     Dosage: 10 MCI, SINGLE DOSE
     Dates: start: 201703, end: 201703
  2. SODIUM IODIDE I?131. [Suspect]
     Active Substance: SODIUM IODIDE I-131
     Indication: BASEDOW^S DISEASE
     Dosage: UNK UNK, SINGLE DOSE
     Dates: start: 201703, end: 201703

REACTIONS (2)
  - Hyperthyroidism [Recovered/Resolved]
  - Adrenocortical insufficiency acute [Recovered/Resolved]

NARRATIVE: CASE EVENT DATE: 2017
